FAERS Safety Report 17909057 (Version 1)
Quarter: 2020Q2

REPORT INFORMATION
  Report Type: Spontaneous
  Country: CN (occurrence: CN)
  Receive Date: 20200617
  Receipt Date: 20200617
  Transmission Date: 20200714
  Serious: Yes (Hospitalization)
  Sender: FDA-Public Use
  Company Number: CN-BAXTER-2020BAX012524

PATIENT
  Age: 52 Year
  Sex: Female
  Weight: 60 kg

DRUGS (12)
  1. ENDOXAN [Suspect]
     Active Substance: CYCLOPHOSPHAMIDE
     Indication: ACUTE LYMPHOCYTIC LEUKAEMIA
     Dosage: D1-3, HYPERCAVD-A REGIMEN, CYCLOPHOSPHAMIDE + 0. 9% NS 250 ML
     Route: 041
     Dates: start: 20200523, end: 20200525
  2. 0.9% SODIUM CHLORIDE INJECTION [Suspect]
     Active Substance: SODIUM CHLORIDE
     Dosage: D1-4, HYPERCAVD-A REGIMEN, DEXAMETHASONE SODIUM PHOSPHATE 40 MG + 0.9% NS
     Route: 041
     Dates: start: 20200523, end: 20200526
  3. 0.9% SODIUM CHLORIDE INJECTION [Suspect]
     Active Substance: SODIUM CHLORIDE
     Dosage: D11-14, HYPERCAVD-A REGIMEN, DEXAMETHASONE SODIUM PHOSPHATE 40 MG + 0.9% NS
     Route: 041
     Dates: start: 20200602, end: 20200605
  4. VINCRISTINE SULFATE. [Suspect]
     Active Substance: VINCRISTINE SULFATE
     Indication: ACUTE LYMPHOCYTIC LEUKAEMIA
     Dosage: D4, HYPERCAVD-A REGIMEN, VINCRISTINE SULFATE + 0.9% NS 100 ML
     Route: 041
     Dates: start: 20200526, end: 20200526
  5. 0.9% SODIUM CHLORIDE INJECTION [Suspect]
     Active Substance: SODIUM CHLORIDE
     Dosage: D11, HYPERCAVD-A REGIMEN, VINCRISTINE SULFATE 2 MG + 0.9% NS
     Route: 041
     Dates: start: 20200602, end: 20200602
  6. 0.9% SODIUM CHLORIDE INJECTION [Suspect]
     Active Substance: SODIUM CHLORIDE
     Dosage: D4, HYPERCAVD-A REGIMEN, VINCRISTINE SULFATE 2 MG + 0.9% NS
     Route: 041
     Dates: start: 20200526, end: 20200526
  7. 5% GLUCOSE  INJECTION [Suspect]
     Active Substance: DEXTROSE
     Indication: MEDICATION DILUTION
     Dosage: D4, HYPERCAVD-A REGIMEN, PIRARUBICIN HYDROCHLORIDE 80 MG + 5% GS
     Route: 041
     Dates: start: 20200526, end: 20200526
  8. DEXAMETHASONE SODIUM PHOSPHATE. [Suspect]
     Active Substance: DEXAMETHASONE SODIUM PHOSPHATE
     Dosage: D11-14, HYPERCAVD-A REGIMEN, DEXAMETHASONE SODIUM PHOSPHATE + 0.9% NS 100 ML
     Route: 041
     Dates: start: 20200602, end: 20200605
  9. 0.9% SODIUM CHLORIDE INJECTION [Suspect]
     Active Substance: SODIUM CHLORIDE
     Indication: MEDICATION DILUTION
     Dosage: D1-3, HYPERCAVD-A REGIMEN, CYCLOPHOSPHAMIDE 0.48 G + 0. 9% NS
     Route: 041
     Dates: start: 20200523, end: 20200525
  10. PIRARUBICIN HYDROCHLORIDE [Suspect]
     Active Substance: PIRARUBICIN HYDROCHLORIDE
     Indication: ACUTE LYMPHOCYTIC LEUKAEMIA
     Dosage: D4, HYPERCAVD-A REGIMEN, PIRARUBICIN HYDROCHLORIDE + 5% GS 250 ML
     Route: 041
     Dates: start: 20200526, end: 20200526
  11. VINCRISTINE SULFATE. [Suspect]
     Active Substance: VINCRISTINE SULFATE
     Dosage: D11, HYPERCAVD-A REGIMEN, VINCRISTINE SULFATE + 0.9% NS 100 ML
     Route: 041
     Dates: start: 20200602, end: 20200602
  12. DEXAMETHASONE SODIUM PHOSPHATE. [Suspect]
     Active Substance: DEXAMETHASONE SODIUM PHOSPHATE
     Indication: ACUTE LYMPHOCYTIC LEUKAEMIA
     Dosage: D1-4, HYPERCAVD-A REGIMEN, DEXAMETHASONE SODIUM PHOSPHATE + 0.9% NS 100 ML
     Route: 041
     Dates: start: 20200523, end: 20200526

REACTIONS (1)
  - Bone marrow failure [Recovering/Resolving]

NARRATIVE: CASE EVENT DATE: 20200604
